FAERS Safety Report 14842326 (Version 2)
Quarter: 2019Q1

REPORT INFORMATION
  Report Type: Report from Study
  Country: SE (occurrence: SE)
  Receive Date: 20180503
  Receipt Date: 20190228
  Transmission Date: 20190417
  Serious: Yes (Death, Hospitalization)
  Sender: FDA-Public Use
  Company Number: SE-BAYER-2018-081501

PATIENT
  Sex: Male
  Weight: 92 kg

DRUGS (12)
  1. ISOSORBIDMONONITRAT [Concomitant]
     Active Substance: ISOSORBIDE MONONITRATE
     Dosage: 120 MG, QD
     Dates: start: 20140404, end: 20170507
  2. HEMINEVRIN [Concomitant]
     Active Substance: CLOMETHIAZOLE
     Dosage: 300 MG, QD
     Dates: start: 20150127, end: 20170507
  3. LEUPRORELIN [Concomitant]
     Active Substance: LEUPROLIDE ACETATE
     Indication: METASTASES TO BONE
  4. TROMBYL [Concomitant]
     Active Substance: ASPIRIN
     Dosage: 75 MG, QD
     Dates: start: 20150123, end: 20170503
  5. ALVEDON [Concomitant]
     Active Substance: ACETAMINOPHEN
     Dosage: 1330 MG X3 DAILY
     Dates: start: 20160914
  6. RADIUM [Suspect]
     Active Substance: RADIUM
     Indication: METASTASES TO BONE
     Dosage: 4800 KBQ, QD
     Dates: start: 20161102, end: 20161102
  7. LEUPRORELIN [Concomitant]
     Active Substance: LEUPROLIDE ACETATE
     Indication: HORMONE-REFRACTORY PROSTATE CANCER
     Dosage: 5 MG, Q3MON
     Dates: start: 20140515
  8. ATORVASTATIN [Concomitant]
     Active Substance: ATORVASTATIN
     Dosage: 40 MG, QD
     Dates: start: 20140408
  9. CITALOPRAM [Concomitant]
     Active Substance: CITALOPRAM HYDROBROMIDE
     Dosage: 20 MG, QD
     Dates: start: 20140516
  10. RADIUM [Suspect]
     Active Substance: RADIUM
     Indication: HORMONE-REFRACTORY PROSTATE CANCER
     Dosage: 4900 KBQ, QD
     Dates: start: 20161005, end: 20161005
  11. METOPROLOL. [Concomitant]
     Active Substance: METOPROLOL
     Dosage: 50 MG, BID
     Dates: start: 20140405
  12. LEVAXIN [Concomitant]
     Active Substance: LEVOTHYROXINE SODIUM
     Dosage: 125 ?G, QD
     Dates: start: 20140314

REACTIONS (1)
  - Thrombocytopenia [Fatal]

NARRATIVE: CASE EVENT DATE: 20161128
